FAERS Safety Report 23315875 (Version 2)
Quarter: 2024Q1

REPORT INFORMATION
  Report Type: Report from Study
  Country: CN (occurrence: CN)
  Receive Date: 20231219
  Receipt Date: 20240117
  Transmission Date: 20240410
  Serious: No
  Sender: FDA-Public Use
  Company Number: CN-PFIZER INC-PV202300202454

PATIENT
  Age: 85 Year
  Sex: Female

DRUGS (25)
  1. NIRMATRELVIR\RITONAVIR [Suspect]
     Active Substance: NIRMATRELVIR\RITONAVIR
     Indication: COVID-19 treatment
     Dosage: UNK, 2X/DAY
     Route: 048
     Dates: start: 20220429, end: 20220504
  2. NIRMATRELVIR\RITONAVIR [Suspect]
     Active Substance: NIRMATRELVIR\RITONAVIR
     Dosage: UNK, 2X/DAY
     Route: 048
     Dates: start: 20220508, end: 20220511
  3. OXYGEN [Concomitant]
     Active Substance: OXYGEN
     Indication: COVID-19 treatment
     Dosage: UNK
     Route: 055
     Dates: start: 20220427, end: 20220511
  4. ISOSORBIDE MONONITRATE [Concomitant]
     Active Substance: ISOSORBIDE MONONITRATE
     Indication: Coronary artery disease
     Dosage: SUSTAINED RELEASE CAPSULES
     Route: 048
     Dates: start: 20220427, end: 20220511
  5. ASPIRIN [Concomitant]
     Active Substance: ASPIRIN
     Indication: Coronary artery disease
     Dosage: ENTERIC-COATED
     Route: 048
     Dates: start: 20220427, end: 20220427
  6. SPIRONOLACTONE [Concomitant]
     Active Substance: SPIRONOLACTONE
     Indication: Coronary artery disease
     Dosage: UNK
     Route: 048
     Dates: start: 20220427, end: 20220511
  7. METOPROLOL SUCCINATE [Concomitant]
     Active Substance: METOPROLOL SUCCINATE
     Indication: Coronary artery disease
     Dosage: EXTENDED-RELEASE TABLET
     Route: 048
     Dates: start: 20220427, end: 20220511
  8. FUROSEMIDE [Concomitant]
     Active Substance: FUROSEMIDE
     Indication: Coronary artery disease
     Dosage: UNK
     Route: 048
     Dates: start: 20220427, end: 20220511
  9. AMLODIPINE BESYLATE [Concomitant]
     Active Substance: AMLODIPINE BESYLATE
     Indication: Hypertension
     Dosage: UNK
     Route: 048
     Dates: start: 20220427, end: 20220511
  10. AMINOPHYLLINE\CHLORPHENIRAMINE MALEATE\METHOXYPHENAMINE HYDROCHLORIDE\ [Concomitant]
     Active Substance: AMINOPHYLLINE\CHLORPHENIRAMINE MALEATE\METHOXYPHENAMINE HYDROCHLORIDE\NOSCAPINE
     Indication: Dyspnoea
     Dosage: UNK
     Route: 048
     Dates: start: 20220427, end: 20220511
  11. MOXIFLOXACIN HYDROCHLORIDE [Concomitant]
     Active Substance: MOXIFLOXACIN HYDROCHLORIDE\MOXIFLOXACIN HYDROCHLORIDE MONOHYDRATE
     Indication: Pneumonia
     Dosage: UNK
     Route: 042
     Dates: start: 20220427, end: 20220502
  12. CLOPIDOGREL BISULFATE [Concomitant]
     Active Substance: CLOPIDOGREL BISULFATE
     Indication: Coronary artery disease
     Dosage: UNK
     Route: 048
     Dates: start: 20220428, end: 20220511
  13. HEPARIN SODIUM [Concomitant]
     Active Substance: HEPARIN SODIUM
     Indication: COVID-19 treatment
     Dosage: UNK
     Route: 058
     Dates: start: 20220427, end: 20220428
  14. HEPARIN SODIUM [Concomitant]
     Active Substance: HEPARIN SODIUM
     Dosage: UNK
     Route: 058
     Dates: start: 20220428, end: 20220504
  15. HEPARIN SODIUM [Concomitant]
     Active Substance: HEPARIN SODIUM
     Dosage: UNK
     Route: 058
     Dates: start: 20220504, end: 20220511
  16. UNSPECIFIED INGREDIENT [Concomitant]
     Active Substance: UNSPECIFIED INGREDIENT
     Indication: Nutritional supplementation
     Dosage: ENTERAL NUTRIENT SUSPENSION, NASOGASTRIC
     Dates: start: 20220502, end: 20220511
  17. OMEPRAZOLE SODIUM [Concomitant]
     Active Substance: OMEPRAZOLE SODIUM
     Indication: Gastrointestinal disorder
     Dosage: UNK
     Route: 042
     Dates: start: 20220502, end: 20220503
  18. AMBROXOL HYDROCHLORIDE [Concomitant]
     Active Substance: AMBROXOL HYDROCHLORIDE
     Indication: Productive cough
     Dosage: UNK
     Route: 042
     Dates: start: 20220503, end: 20220506
  19. PREDNISONE ACETATE [Concomitant]
     Active Substance: PREDNISONE ACETATE
     Indication: Dyspnoea
     Dosage: UNK
     Route: 048
     Dates: start: 20220502, end: 20220503
  20. METHYLPREDNISOLONE SODIUM SUCCINATE [Concomitant]
     Active Substance: METHYLPREDNISOLONE SODIUM SUCCINATE
     Indication: Dyspnoea
     Dosage: UNK
     Route: 042
     Dates: start: 20220427, end: 20220427
  21. METHYLPREDNISOLONE SODIUM SUCCINATE [Concomitant]
     Active Substance: METHYLPREDNISOLONE SODIUM SUCCINATE
     Dosage: UNK
     Route: 042
     Dates: start: 20220503, end: 20220506
  22. THYMUS [THYMUS GLAND] [Concomitant]
     Indication: COVID-19 treatment
     Dosage: METHOD FOR INJECTION
     Route: 058
     Dates: start: 20220505, end: 20220511
  23. BUDESONIDE [Concomitant]
     Active Substance: BUDESONIDE
     Indication: Dyspnoea
     Dosage: INHALATION SUSPENSION
     Route: 055
     Dates: start: 20220430, end: 20220511
  24. IPRATROPIUM BROMIDE [Concomitant]
     Active Substance: IPRATROPIUM BROMIDE\IPRATROPIUM BROMIDE ANHYDROUS
     Indication: Dyspnoea
     Dosage: SOLUTION OF IPRATROPIUM BROMIDE FOR INHALATION
     Route: 055
     Dates: start: 20220430, end: 20220511
  25. LACTULOSE [Concomitant]
     Active Substance: LACTULOSE
     Indication: Constipation
     Dosage: UNK
     Route: 048
     Dates: start: 20220507

REACTIONS (1)
  - Overdose [Unknown]
